FAERS Safety Report 7589630-6 (Version None)
Quarter: 2011Q3

REPORT INFORMATION
  Report Type: 
  Country: None (occurrence: None)
  Receive Date: 20110705
  Receipt Date: 20110629
  Transmission Date: 20111222
  Serious: Yes (Other)
  Sender: FDA-Public Use
  Company Number: US-PFIZER INC-2011145942

PATIENT
  Sex: Male
  Weight: 83.9 kg

DRUGS (2)
  1. NEOSPORIN G.U. IRRIGANT [Suspect]
     Indication: WOUND HAEMORRHAGE
     Dosage: UNK
     Dates: start: 20110628
  2. IBUPROFEN (ADVIL) [Suspect]
     Indication: CONTUSION
     Dosage: 200 MG, AS NEEDED
     Dates: start: 20110201

REACTIONS (2)
  - WOUND HAEMORRHAGE [None]
  - DRUG INEFFECTIVE [None]
